FAERS Safety Report 11983813 (Version 1)
Quarter: 2016Q1

REPORT INFORMATION
  Report Type: Spontaneous
  Country: US (occurrence: US)
  Receive Date: 20160201
  Receipt Date: 20160201
  Transmission Date: 20160526
  Serious: Yes (Other)
  Sender: FDA-Public Use
  Company Number: US-INDIVIOR LIMITED-INDV-086433-2015

PATIENT
  Age: 54 Year
  Sex: Male

DRUGS (1)
  1. SUBOXONE [Suspect]
     Active Substance: BUPRENORPHINE HYDROCHLORIDE\NALOXONE HYDROCHLORIDE
     Indication: DRUG DEPENDENCE
     Dosage: 24MG, DAILY FOR 3-4 DAYS
     Route: 060
     Dates: start: 2013, end: 2013

REACTIONS (5)
  - Hypersensitivity [Recovered/Resolved]
  - Tongue blistering [Recovered/Resolved]
  - Dyspnoea [Recovered/Resolved]
  - Pharyngeal oedema [Recovered/Resolved]
  - Oropharyngeal blistering [Recovered/Resolved]

NARRATIVE: CASE EVENT DATE: 2013
